FAERS Safety Report 13547213 (Version 1)
Quarter: 2017Q2

REPORT INFORMATION
  Report Type: Spontaneous
  Country: IL (occurrence: IL)
  Receive Date: 20170515
  Receipt Date: 20170515
  Transmission Date: 20170830
  Serious: Yes (Other)
  Sender: FDA-Public Use
  Company Number: IL-PFIZER INC-2017206996

PATIENT
  Age: 73 Year
  Sex: Female

DRUGS (1)
  1. TRITACE [Suspect]
     Active Substance: RAMIPRIL
     Indication: PROPHYLAXIS
     Dosage: 5 MG, 1X/DAY
     Route: 065

REACTIONS (1)
  - Hypertension [Not Recovered/Not Resolved]
